FAERS Safety Report 8481734 (Version 3)
Quarter: 2012Q4

REPORT INFORMATION
  Report Type: 
  Country: US (occurrence: US)
  Receive Date: 20120329
  Receipt Date: 20120904
  Transmission Date: 20130627
  Serious: Yes (Hospitalization, Other)
  Sender: FDA-Public Use
  Company Number: US-BAYER-2012-030218

PATIENT
  Age: 39 Year
  Sex: Female
  Weight: 72.56 kg

DRUGS (3)
  1. YAZ [Suspect]
     Indication: CONTRACEPTION
     Dosage: UNK
     Dates: start: 200906, end: 201008
  2. EFFEXOR [Concomitant]
  3. SINGULAIR [Concomitant]

REACTIONS (8)
  - Deep vein thrombosis [Recovered/Resolved]
  - Cholecystitis [Recovered/Resolved]
  - Venous insufficiency [Recovered/Resolved]
  - Injury [None]
  - Pain [None]
  - General physical health deterioration [None]
  - Anxiety [None]
  - Emotional distress [None]
